FAERS Safety Report 14758046 (Version 1)
Quarter: 2018Q2

REPORT INFORMATION
  Report Type: Spontaneous
  Country: US (occurrence: US)
  Receive Date: 20180413
  Receipt Date: 20180413
  Transmission Date: 20180711
  Serious: Yes (Hospitalization, Other)
  Sender: FDA-Public Use
  Company Number: US-GLAXOSMITHKLINE-US2018059334

PATIENT
  Age: 73 Year
  Sex: Female

DRUGS (10)
  1. SIMVASTATIN. [Concomitant]
     Active Substance: SIMVASTATIN
  2. LASIX [Concomitant]
     Active Substance: FUROSEMIDE
  3. LEVOTHYROXINE. [Concomitant]
     Active Substance: LEVOTHYROXINE
  4. FLU TRIVALENT VACCINE [Suspect]
     Active Substance: INFLUENZA VIRUS VACCINE TRIVALENT TYPE A+B
     Indication: PROPHYLAXIS
  5. NEURONTIN [Concomitant]
     Active Substance: GABAPENTIN
  6. SINGULAIR [Concomitant]
     Active Substance: MONTELUKAST SODIUM
  7. ALLOPURINOL. [Concomitant]
     Active Substance: ALLOPURINOL
  8. ADVAIR DISKUS [Suspect]
     Active Substance: FLUTICASONE PROPIONATE\SALMETEROL XINAFOATE
     Indication: ASTHMA
     Dosage: 1 PUFF(S), BID
     Route: 055
  9. LISINOPRIL. [Concomitant]
     Active Substance: LISINOPRIL
  10. WARFARIN [Concomitant]
     Active Substance: WARFARIN

REACTIONS (10)
  - Fall [Unknown]
  - Guillain-Barre syndrome [Recovered/Resolved with Sequelae]
  - Malaise [Unknown]
  - Asthenia [Unknown]
  - Expired product administered [Unknown]
  - Paraesthesia [Unknown]
  - Balance disorder [Unknown]
  - Hypoaesthesia [Unknown]
  - Hypokinesia [Unknown]
  - Paralysis [Recovered/Resolved]

NARRATIVE: CASE EVENT DATE: 200812
